FAERS Safety Report 7774920-4 (Version None)
Quarter: 2011Q3

REPORT INFORMATION
  Report Type: 
  Country: None (occurrence: None)
  Receive Date: 20110921
  Receipt Date: 20110906
  Transmission Date: 20111222
  Serious: Yes (Other)
  Sender: FDA-Public Use
  Company Number: FK201101896

PATIENT

DRUGS (4)
  1. CYTARABINE [Suspect]
     Indication: DIFFUSE LARGE B-CELL LYMPHOMA
     Dosage: 2000 MG/M2, TWICE DAILY ON DAYS -8 TO -5
  2. CYCLOPHOSPHAMIDE [Suspect]
     Indication: DIFFUSE LARGE B-CELL LYMPHOMA
     Dosage: 50 MG/KG, ON DAYS -3 AND -2
  3. RANIMUSTINE (RANIMUSTINE) (RANIMUSTINE) [Suspect]
     Indication: DIFFUSE LARGE B-CELL LYMPHOMA
     Dosage: 250 MG/M2, ON DAY -9 200 MG/M2, ON DAY -4
  4. ETOPOSIDE [Suspect]
     Indication: DIFFUSE LARGE B-CELL LYMPHOMA
     Dosage: 200 MG/M2, TWICE DAILY ON DAYS -8 TO -5

REACTIONS (1)
  - MYELODYSPLASTIC SYNDROME [None]
